FAERS Safety Report 10594099 (Version 1)
Quarter: 2014Q4

REPORT INFORMATION
  Report Type: Spontaneous
  Country: US (occurrence: US)
  Receive Date: 20141119
  Receipt Date: 20141119
  Transmission Date: 20150529
  Serious: No
  Sender: FDA-Public Use
  Company Number: US-TEVA-523185USA

PATIENT
  Age: 54 Year
  Sex: Female
  Weight: 47.67 kg

DRUGS (11)
  1. BACLOFEN. [Concomitant]
     Active Substance: BACLOFEN
     Indication: TRIGEMINAL NEURALGIA
  2. ZANAFLEX [Concomitant]
     Active Substance: TIZANIDINE HYDROCHLORIDE
     Indication: TRIGEMINAL NEURALGIA
  3. BACLOFEN. [Concomitant]
     Active Substance: BACLOFEN
     Indication: MUSCLE SPASMS
  4. ZANAFLEX [Concomitant]
     Active Substance: TIZANIDINE HYDROCHLORIDE
     Indication: MUSCLE SPASMS
  5. ACIPHEX [Concomitant]
     Active Substance: RABEPRAZOLE SODIUM
     Indication: GASTROINTESTINAL DISORDER
  6. KEPPRA [Concomitant]
     Active Substance: LEVETIRACETAM
     Indication: NEURALGIA
  7. ACTIQ [Suspect]
     Active Substance: FENTANYL CITRATE
     Indication: TRIGEMINAL NEURALGIA
     Route: 065
     Dates: start: 2000
  8. ZOMIG [Concomitant]
     Active Substance: ZOLMITRIPTAN
     Indication: MIGRAINE
  9. DIAZEPAM. [Concomitant]
     Active Substance: DIAZEPAM
     Indication: MUSCLE SPASTICITY
  10. DIAZEPAM. [Concomitant]
     Active Substance: DIAZEPAM
     Indication: TRIGEMINAL NEURALGIA
  11. DURAGESIC [Concomitant]
     Active Substance: FENTANYL
     Indication: TRIGEMINAL NEURALGIA
     Route: 062

REACTIONS (4)
  - Product use issue [Unknown]
  - Neuralgia [Not Recovered/Not Resolved]
  - Dental caries [Not Recovered/Not Resolved]
  - Tooth loss [Not Recovered/Not Resolved]

NARRATIVE: CASE EVENT DATE: 20141112
